FAERS Safety Report 20850108 (Version 1)
Quarter: 2022Q2

REPORT INFORMATION
  Report Type: Spontaneous
  Country: CN (occurrence: None)
  Receive Date: 20220519
  Receipt Date: 20220519
  Transmission Date: 20220721
  Serious: Yes (Other)
  Sender: FDA-Public Use
  Company Number: CN-ROCHE-3093559

PATIENT
  Age: 57 Year
  Sex: Male
  Weight: 65 kg

DRUGS (3)
  1. VALPROATE SODIUM [Suspect]
     Active Substance: VALPROATE SODIUM
     Indication: Epilepsy
     Route: 048
     Dates: start: 20181106
  2. ETIMICIN SULFATE [Suspect]
     Active Substance: ETIMICIN SULFATE
     Indication: Pneumonia aspiration
     Route: 041
     Dates: start: 20181106
  3. OSELTAMIVIR [Suspect]
     Active Substance: OSELTAMIVIR
     Indication: Antiviral treatment
     Route: 048
     Dates: start: 20181107

REACTIONS (1)
  - Liver injury [Recovering/Resolving]

NARRATIVE: CASE EVENT DATE: 20181109
